APPROVED DRUG PRODUCT: EMTRIVA
Active Ingredient: EMTRICITABINE
Strength: 10MG/ML
Dosage Form/Route: SOLUTION;ORAL
Application: N021896 | Product #001
Applicant: GILEAD SCIENCES INC
Approved: Sep 28, 2005 | RLD: Yes | RS: Yes | Type: RX